FAERS Safety Report 12133704 (Version 1)
Quarter: 2016Q1

REPORT INFORMATION
  Report Type: Spontaneous
  Country: FR (occurrence: FR)
  Receive Date: 20160301
  Receipt Date: 20160301
  Transmission Date: 20160526
  Serious: Yes (Death)
  Sender: FDA-Public Use
  Company Number: FR-ACCORD-023881

PATIENT
  Age: 65 Year
  Sex: Female

DRUGS (6)
  1. OFLOCET [Suspect]
     Active Substance: OFLOXACIN
     Indication: FEBRILE BONE MARROW APLASIA
     Route: 042
     Dates: start: 20140303, end: 20140303
  2. TAZOCILLINE [Suspect]
     Active Substance: PIPERACILLIN SODIUM\TAZOBACTAM SODIUM
     Indication: FEBRILE BONE MARROW APLASIA
     Route: 042
     Dates: start: 20140305, end: 20140308
  3. GENTAMICIN. [Suspect]
     Active Substance: GENTAMICIN
     Indication: FEBRILE BONE MARROW APLASIA
     Route: 042
     Dates: start: 20140305, end: 20140308
  4. ENDOXAN [Suspect]
     Active Substance: CYCLOPHOSPHAMIDE
     Indication: BREAST CANCER
     Route: 042
     Dates: start: 20140227
  5. AUGMENTIN [Suspect]
     Active Substance: AMOXICILLIN\CLAVULANATE POTASSIUM
     Indication: FEBRILE BONE MARROW APLASIA
     Route: 042
     Dates: start: 20140304, end: 20140304
  6. DOCETAXEL ACCORD [Suspect]
     Active Substance: DOCETAXEL
     Indication: BREAST CANCER
     Route: 042
     Dates: start: 20140227

REACTIONS (3)
  - Toxic epidermal necrolysis [Fatal]
  - Multiple organ dysfunction syndrome [Fatal]
  - Malnutrition [Fatal]

NARRATIVE: CASE EVENT DATE: 20140306
